FAERS Safety Report 4539217-4 (Version None)
Quarter: 2004Q4

REPORT INFORMATION
  Report Type: 
  Country: None (occurrence: None)
  Receive Date: 20041227
  Receipt Date: 20041227
  Transmission Date: 20050328
  Serious: Yes (Death, Life-Threatening, Hospitalization)
  Sender: FDA-Public Use
  Company Number: None

PATIENT
  Age: 88 Year
  Sex: Male
  Weight: 36.2878 kg

DRUGS (14)
  1. TRAZODONE HCL [Suspect]
     Indication: AGITATION
     Dosage: 25 MG 4 X A DAY PRN (I BELIEVE TAKEN ONCE A DAY) PO
     Dates: start: 20040801, end: 20041007
  2. TRAZODONE HCL [Suspect]
     Indication: AGITATION
     Dosage: 25 MG 4 X A DAY PRN (I BELIEVE TAKEN ONCE A DAY) PO
     Dates: start: 20041101, end: 20041203
  3. MIRALAX POWDER [Concomitant]
  4. DIOCTO [Concomitant]
  5. SEROQUEL [Concomitant]
  6. SENNA [Concomitant]
  7. ARICEPT [Concomitant]
  8. FLOMAX [Concomitant]
  9. VITAMIN B-12 [Concomitant]
  10. ECOTRIN [Concomitant]
  11. OCUVITE [Concomitant]
  12. MULIVITE [Concomitant]
  13. LEXAPRO [Concomitant]
  14. FOLIC ACID [Concomitant]

REACTIONS (13)
  - AGITATION [None]
  - APHASIA [None]
  - ASTHENIA [None]
  - BACK PAIN [None]
  - COMPRESSION FRACTURE [None]
  - CONDITION AGGRAVATED [None]
  - DEHYDRATION [None]
  - DYSGEUSIA [None]
  - EATING DISORDER [None]
  - FALL [None]
  - INJURY [None]
  - PNEUMONIA [None]
  - WEIGHT DECREASED [None]
